FAERS Safety Report 12499865 (Version 1)
Quarter: 2016Q2

REPORT INFORMATION
  Report Type: Report from Study
  Country: US (occurrence: US)
  Receive Date: 20160627
  Receipt Date: 20160627
  Transmission Date: 20160815
  Serious: Yes (Other)
  Sender: FDA-Public Use
  Company Number: US-JNJFOC-20160620108

PATIENT
  Age: 86 Year
  Sex: Female

DRUGS (6)
  1. CALCIUM [Concomitant]
     Active Substance: CALCIUM
     Dates: end: 201606
  2. TRIAMCINOLONE [Concomitant]
     Active Substance: TRIAMCINOLONE
     Dates: end: 201606
  3. IMBRUVICA [Suspect]
     Active Substance: IBRUTINIB
     Indication: CHRONIC LYMPHOCYTIC LEUKAEMIA
     Route: 048
     Dates: start: 20140208, end: 201606
  4. OCUVITE [Concomitant]
     Active Substance: VITAMINS
     Dates: end: 201606
  5. METOPROLOL. [Concomitant]
     Active Substance: METOPROLOL
     Dates: end: 201606
  6. CLARITIN [Concomitant]
     Active Substance: LORATADINE
     Dates: end: 201606

REACTIONS (3)
  - Off label use [Recovered/Resolved]
  - Hallucination [Not Recovered/Not Resolved]
  - Incorrect dose administered [Recovered/Resolved]

NARRATIVE: CASE EVENT DATE: 20140208
